FAERS Safety Report 7872550-7 (Version None)
Quarter: 2011Q4

REPORT INFORMATION
  Report Type: 
  Country: None (occurrence: None)
  Receive Date: 20111030
  Receipt Date: 20110428
  Transmission Date: 20120403
  Serious: No
  Sender: FDA-Public Use
  Company Number: US-AMGEN-USASP2011022428

PATIENT
  Age: 40 Year
  Sex: Female
  Weight: 90.249 kg

DRUGS (3)
  1. PREDNISONE [Concomitant]
     Dosage: 3 MG, UNK
  2. TETRACYCLINE HYDROCHLORIDE [Concomitant]
     Dosage: 200 MG, QD
  3. ENBREL [Suspect]
     Dosage: UNK

REACTIONS (4)
  - BLOOD PRESSURE INCREASED [None]
  - CHEST DISCOMFORT [None]
  - THERAPEUTIC RESPONSE DECREASED [None]
  - FEELING HOT [None]
